FAERS Safety Report 9330946 (Version 12)
Quarter: 2013Q3

REPORT INFORMATION
  Report Type: Report from Study
  Country: AR (occurrence: AR)
  Receive Date: 20130605
  Receipt Date: 20130903
  Transmission Date: 20140515
  Serious: Yes (Hospitalization)
  Sender: FDA-Public Use
  Company Number: AR-ROCHE-1232004

PATIENT
  Age: 76 Year
  Sex: Female
  Weight: 76 kg

DRUGS (13)
  1. BLINDED TOCILIZUMAB [Suspect]
     Indication: RHEUMATOID ARTHRITIS
     Dosage: MOST RECENT DOSE PRIOR TO EVENT ON 17/OCT/2011
     Route: 058
     Dates: start: 20110606, end: 20111017
  2. BLINDED TOCILIZUMAB [Suspect]
     Indication: RHEUMATOID ARTHRITIS
     Dosage: MOST RECENT DOSE PRIOR TO EVENT ON 24/OCT/2011
     Route: 042
     Dates: start: 20110606, end: 20111024
  3. TOCILIZUMAB [Suspect]
     Indication: RHEUMATOID ARTHRITIS
     Dosage: MOST RECENT DOSE PRIOR TO EVENT ON 26/FEB/2013, LAST DOSE TAKEN: 28.8 ML
     Route: 042
     Dates: start: 20111129, end: 20130226
  4. LEVOFLOXACINE [Concomitant]
     Route: 048
     Dates: start: 20130501, end: 20130507
  5. DICLOFENAC [Concomitant]
     Indication: RHEUMATOID ARTHRITIS
     Route: 048
     Dates: start: 201009
  6. MEPREDNISONE [Concomitant]
     Indication: RHEUMATOID ARTHRITIS
     Route: 048
     Dates: start: 201009
  7. IBANDRONIC ACID [Concomitant]
     Route: 048
     Dates: start: 201011
  8. METHOTREXATE [Concomitant]
     Indication: RHEUMATOID ARTHRITIS
     Route: 048
     Dates: start: 20120514
  9. FOLIC ACID [Concomitant]
     Indication: RHEUMATOID ARTHRITIS
     Route: 048
     Dates: start: 20120514
  10. AMOXICILLIN [Concomitant]
     Route: 048
     Dates: start: 20130501, end: 20130507
  11. SULBACTAM [Concomitant]
     Indication: LOCALISED INFECTION
     Route: 048
     Dates: start: 20130501, end: 20130507
  12. CIPROFLOXACINE [Concomitant]
     Route: 048
     Dates: start: 20130501, end: 20130507
  13. VALPROIC ACID [Concomitant]
     Route: 048
     Dates: start: 20130605

REACTIONS (1)
  - Haemorrhagic stroke [Recovered/Resolved with Sequelae]
